FAERS Safety Report 6904628-6 (Version None)
Quarter: 2010Q3

REPORT INFORMATION
  Report Type: 
  Country: None (occurrence: None)
  Receive Date: 20100804
  Receipt Date: 20090625
  Transmission Date: 20110219
  Serious: No
  Sender: FDA-Public Use
  Company Number: US-PFIZER INC-2009207705

PATIENT

DRUGS (1)
  1. LYRICA [Suspect]

REACTIONS (6)
  - ARTHRALGIA [None]
  - EYE PAIN [None]
  - HEADACHE [None]
  - LYMPHADENOPATHY [None]
  - NECK PAIN [None]
  - NUCHAL RIGIDITY [None]
